FAERS Safety Report 11680520 (Version 1)
Quarter: 2015Q4

REPORT INFORMATION
  Report Type: Spontaneous
  Country: US (occurrence: US)
  Receive Date: 20151029
  Receipt Date: 20151029
  Transmission Date: 20160304
  Serious: Yes (Other)
  Sender: FDA-Public Use
  Company Number: US-ROCHE-1651968

PATIENT

DRUGS (1)
  1. LUCENTIS [Suspect]
     Active Substance: RANIBIZUMAB
     Indication: NEOVASCULAR AGE-RELATED MACULAR DEGENERATION
     Dosage: IN RIGHT EYE
     Route: 050

REACTIONS (9)
  - Sinusitis [Unknown]
  - Irritable bowel syndrome [Unknown]
  - Gastric cancer [Unknown]
  - Impaired gastric emptying [Unknown]
  - Flatulence [Unknown]
  - Abdominal pain upper [Unknown]
  - Abdominal distension [Unknown]
  - Vitreous floaters [Unknown]
  - Dyspnoea [Unknown]
